FAERS Safety Report 26036929 (Version 3)
Quarter: 2025Q4

REPORT INFORMATION
  Report Type: Spontaneous
  Country: US (occurrence: US)
  Receive Date: 20251112
  Receipt Date: 20251214
  Transmission Date: 20260118
  Serious: Yes (Death)
  Sender: VERTEX
  Company Number: US-VERTEX PHARMACEUTICALS-2025-018642

PATIENT
  Age: 60 Year
  Sex: Female

DRUGS (1)
  1. SYMDEKO [Suspect]
     Active Substance: IVACAFTOR\TEZACAFTOR
     Indication: Cystic fibrosis
     Dosage: 100MG TEZACAFTOR/150MG IVACAFTOR AND 150MG IVACAFTOR
     Route: 061

REACTIONS (1)
  - Death [Fatal]

NARRATIVE: CASE EVENT DATE: 20251030
